FAERS Safety Report 18629715 (Version 1)
Quarter: 2020Q4

REPORT INFORMATION
  Report Type: Spontaneous
  Country: US (occurrence: US)
  Receive Date: 20201217
  Receipt Date: 20201217
  Transmission Date: 20210114
  Serious: Yes (Life-Threatening, Hospitalization)
  Sender: FDA-Public Use
  Company Number: US-IGSA-BIG0012513

PATIENT
  Sex: Female

DRUGS (14)
  1. ALPHANATE [Suspect]
     Active Substance: HUMAN COAGULATION FACTOR VIII/VON WILLEBRAND FACTOR COMPLEX
     Indication: VITAMIN D DEFICIENCY
     Dosage: 3780 INTERNATIONAL UNIT, BID
     Route: 042
  2. NASAL ALLERGY 55 MCG SPRAY [Concomitant]
  3. NEXIUM I.V. [Concomitant]
     Active Substance: ESOMEPRAZOLE SODIUM
     Dosage: 40 MILLIGRAM
  4. FAMCICLOVIR. [Concomitant]
     Active Substance: FAMCICLOVIR
     Dosage: 500 MILLIGRAM
  5. TRANEXAMIC [Concomitant]
     Active Substance: TRANEXAMIC ACID
  6. VITAMIN D NOS [Concomitant]
     Active Substance: VITAMIN D NOS
  7. ALBUTEROL SULFATE. [Concomitant]
     Active Substance: ALBUTEROL SULFATE
  8. PRIMIDONE. [Concomitant]
     Active Substance: PRIMIDONE
     Dosage: 50 MILLIGRAM
  9. SINGULAIR [Concomitant]
     Active Substance: MONTELUKAST SODIUM
     Dosage: 10 MILLIGRAM
  10. ZYRTEC [Concomitant]
     Active Substance: CETIRIZINE HYDROCHLORIDE
     Dosage: 10 MILLIGRAM
  11. CYMBALTA [Concomitant]
     Active Substance: DULOXETINE HYDROCHLORIDE
  12. TYLENOL WITH CODEINE [Concomitant]
     Active Substance: ACETAMINOPHEN\CODEINE PHOSPHATE
  13. ALPHANATE [Suspect]
     Active Substance: HUMAN COAGULATION FACTOR VIII/VON WILLEBRAND FACTOR COMPLEX
     Dosage: 3780 INTERNATIONAL UNIT, BID
     Route: 042
     Dates: start: 2015
  14. VITAMIN B COMPLEX NOS [Concomitant]
     Active Substance: CYANOCOBALAMIN\PYRIDOXINE HYDROCHLORIDE\RIBOFLAVIN\SODIUM PANTOTHENATE\THIAMINE HYDROCHLORIDE\VITAMIN B COMPLEX

REACTIONS (3)
  - Haemorrhage [Recovering/Resolving]
  - Sepsis [Recovering/Resolving]
  - Necrosis [Recovering/Resolving]
